FAERS Safety Report 5446115-0 (Version None)
Quarter: 2007Q3

REPORT INFORMATION
  Report Type: 
  Country: None (occurrence: None)
  Receive Date: 20070907
  Receipt Date: 20070830
  Transmission Date: 20080115
  Serious: Yes (Death, Hospitalization)
  Sender: FDA-Public Use
  Company Number: GB-AVENTIS-200717530GDDC

PATIENT
  Age: 53 Year
  Sex: Male

DRUGS (9)
  1. LEVOFLOXACIN [Suspect]
     Dosage: DOSE: UNK
  2. METRONIDAZOLE [Suspect]
     Dosage: DOSE: UNK
  3. AUGMENTIN '125' [Suspect]
     Dosage: DOSE: UNK
  4. GENTAMICIN [Suspect]
  5. PARACETAMOL [Suspect]
     Dosage: DOSE: UNK
  6. VANCOMYCIN [Suspect]
     Dosage: DOSE: UNK
  7. DICLOFENAC [Concomitant]
     Dosage: DOSE: UNK
  8. METOCLOPRAMIDE [Concomitant]
     Dosage: DOSE: UNK
  9. OMEPRAZOLE [Concomitant]
     Dosage: DOSE: UNK

REACTIONS (3)
  - DISORIENTATION [None]
  - METABOLIC ACIDOSIS [None]
  - MYOCARDIAL INFARCTION [None]
